FAERS Safety Report 24416652 (Version 1)
Quarter: 2024Q4

REPORT INFORMATION
  Report Type: Spontaneous
  Country: US (occurrence: None)
  Receive Date: 20241009
  Receipt Date: 20241009
  Transmission Date: 20250115
  Serious: Yes (Life-Threatening, Hospitalization, Disabling, Other)
  Sender: Public
  Company Number: None

PATIENT
  Age: 64 Year
  Sex: Male
  Weight: 116.57 kg

DRUGS (26)
  1. KEYTRUDA [Suspect]
     Active Substance: PEMBROLIZUMAB
     Indication: Malignant melanoma
     Dosage: OTHER FREQUENCY : EVERY6WEEKS ;?
     Route: 042
     Dates: start: 20230818, end: 20230818
  2. LEVOTHYROXINE [Concomitant]
     Active Substance: LEVOTHYROXINE
  3. ROSUVASTATIN [Concomitant]
     Active Substance: ROSUVASTATIN
  4. SILDENAFIL [Concomitant]
     Active Substance: SILDENAFIL
  5. TADALAFIL [Concomitant]
     Active Substance: TADALAFIL
  6. PYRIDOSTIGM [Concomitant]
  7. VALACYCLOVIR [Concomitant]
     Active Substance: VALACYCLOVIR HYDROCHLORIDE
  8. TRAZODONE [Concomitant]
     Active Substance: TRAZODONE HYDROCHLORIDE
  9. TRAMADOL [Concomitant]
     Active Substance: TRAMADOL
  10. SUMATRIPTAN [Concomitant]
     Active Substance: SUMATRIPTAN
  11. BRIMONIDINE TARTRATE\TIMOLOL MALEATE [Concomitant]
     Active Substance: BRIMONIDINE TARTRATE\TIMOLOL MALEATE
  12. PREDNISOLONE [Concomitant]
     Active Substance: PREDNISOLONE
  13. VITAMIN C [Concomitant]
     Active Substance: ASCORBIC ACID
  14. VIT C + D + ZINC [Concomitant]
  15. BERGAMOT [Concomitant]
  16. B12 [Concomitant]
  17. POTASSIUM [Concomitant]
     Active Substance: POTASSIUM
  18. HERBALS\SAW PALMETTO [Concomitant]
     Active Substance: HERBALS\SAW PALMETTO
  19. GLUCOSAMINE CHRONDROITIN [Concomitant]
  20. DIETARY SUPPLEMENT [Concomitant]
     Active Substance: DIETARY SUPPLEMENT
  21. DIETARY SUPPLEMENT [Concomitant]
     Active Substance: DIETARY SUPPLEMENT
  22. MAGNESIUM [Concomitant]
     Active Substance: MAGNESIUM
  23. ADULT 50+ MULTIVIT [Concomitant]
  24. CYANOCOBALAMIN\DEXPANTHENOL\NIACINAMIDE\PYRIDOXINE HYDROCHLORIDE\RIBOF [Concomitant]
     Active Substance: CYANOCOBALAMIN\DEXPANTHENOL\NIACINAMIDE\PYRIDOXINE HYDROCHLORIDE\RIBOFLAVIN 5^-PHOSPHATE SODIUM\THIA
  25. SELENIUM [Concomitant]
     Active Substance: SELENIUM
  26. LOW DOSE ASPIRIN [Concomitant]
     Active Substance: ASPIRIN

REACTIONS (7)
  - Fatigue [None]
  - Asthenia [None]
  - Urinary tract infection [None]
  - Myasthenia gravis [None]
  - Fatigue [None]
  - Eye disorder [None]
  - Cardiac disorder [None]

NARRATIVE: CASE EVENT DATE: 20230914
